FAERS Safety Report 11864112 (Version 4)
Quarter: 2016Q1

REPORT INFORMATION
  Report Type: Spontaneous
  Country: US (occurrence: US)
  Receive Date: 20151223
  Receipt Date: 20160223
  Transmission Date: 20160526
  Serious: Yes (Other)
  Sender: FDA-Public Use
  Company Number: US-AMGEN-USASP2015135992

PATIENT
  Age: 69 Year
  Sex: Female
  Weight: 68.93 kg

DRUGS (14)
  1. FOLIC ACID. [Concomitant]
     Active Substance: FOLIC ACID
     Dosage: 1 MG, QD
     Route: 048
  2. RITUXIMAB [Concomitant]
     Active Substance: RITUXIMAB
     Dosage: UNK
     Dates: start: 2014, end: 2015
  3. PROZAC [Concomitant]
     Active Substance: FLUOXETINE HYDROCHLORIDE
     Dosage: 10 MG, QD
     Route: 048
  4. ALBUTEROL                          /00139501/ [Concomitant]
     Active Substance: ALBUTEROL
     Dosage: UNK
     Route: 065
  5. VITAMIN B12 [Concomitant]
     Active Substance: CYANOCOBALAMIN
     Dosage: 1000 MCG, UNK
     Route: 048
  6. PREDNISONE. [Concomitant]
     Active Substance: PREDNISONE
     Dosage: 5 MG, QD
     Route: 048
  7. PROCRIT [Suspect]
     Active Substance: ERYTHROPOIETIN
     Indication: HAEMOLYTIC ANAEMIA
     Dosage: 20000 UNIT, 5 DAYS X PER WEEK
     Route: 058
     Dates: start: 1999, end: 20151228
  8. COZAAR [Concomitant]
     Active Substance: LOSARTAN POTASSIUM
     Dosage: 25 MG, QD
     Route: 048
  9. PROCRIT [Suspect]
     Active Substance: ERYTHROPOIETIN
     Dosage: 20000 UNIT, DAILY
     Route: 058
     Dates: start: 20150421
  10. PREVACID [Concomitant]
     Active Substance: LANSOPRAZOLE
     Dosage: 30 MG, QD
     Route: 048
  11. PROCRIT [Suspect]
     Active Substance: ERYTHROPOIETIN
     Indication: MYELODYSPLASTIC SYNDROME
     Dosage: 20000 UNIT, DAILY
     Route: 058
     Dates: end: 20150310
  12. XANAX [Concomitant]
     Active Substance: ALPRAZOLAM
     Dosage: 0.25 MG, AS NEEDED
     Route: 048
  13. CALCIUM WITH VITAMIN D             /00944201/ [Concomitant]
     Active Substance: CALCIUM\VITAMIN D
     Dosage: 600/400 MG, UNK
     Route: 048
  14. SYNTHROID [Concomitant]
     Active Substance: LEVOTHYROXINE SODIUM
     Dosage: 25 MCG, QD
     Route: 048

REACTIONS (6)
  - Anaemia [Not Recovered/Not Resolved]
  - Reticulocyte count decreased [Not Recovered/Not Resolved]
  - Haemolysis [Recovered/Resolved]
  - Drug effect decreased [Unknown]
  - Marrow hyperplasia [Unknown]
  - Off label use [Unknown]

NARRATIVE: CASE EVENT DATE: 2015
